FAERS Safety Report 8289399-6 (Version None)
Quarter: 2012Q2

REPORT INFORMATION
  Report Type: 
  Country: None (occurrence: None)
  Receive Date: 20120417
  Receipt Date: 20120413
  Transmission Date: 20120825
  Serious: Yes (Other)
  Sender: FDA-Public Use
  Company Number: JP-PFIZER INC-2012093162

PATIENT
  Age: 95 Year
  Sex: Male

DRUGS (6)
  1. NITROL [Concomitant]
     Dosage: UNK
  2. ASPIRIN [Concomitant]
     Dosage: UNK
  3. AMLODIPINE [Concomitant]
     Dosage: UNK
  4. LYRICA [Suspect]
     Dosage: 50 MG/DAY
  5. LYRICA [Suspect]
     Dosage: 75 MG/DAY
  6. LYRICA [Suspect]
     Indication: SCIATICA
     Dosage: 25 MG/DAY
     Route: 048

REACTIONS (2)
  - RESPIRATORY DEPRESSION [None]
  - DEPRESSED LEVEL OF CONSCIOUSNESS [None]
